FAERS Safety Report 15477496 (Version 2)
Quarter: 2018Q4

REPORT INFORMATION
  Report Type: Report from Study
  Country: None (occurrence: US)
  Receive Date: 20181009
  Receipt Date: 20181116
  Transmission Date: 20190205
  Serious: Yes (Hospitalization, Other)
  Sender: FDA-Public Use
  Company Number: US-ABBVIE-18K-163-2512235-00

PATIENT
  Age: 53 Year
  Sex: Female

DRUGS (1)
  1. HUMIRA [Suspect]
     Active Substance: ADALIMUMAB
     Indication: PSORIASIS
     Route: 058

REACTIONS (5)
  - Benign breast neoplasm [Recovered/Resolved]
  - Fibrocystic breast disease [Recovered/Resolved]
  - Diabetic mastopathy [Recovered/Resolved]
  - Psoriasis [Recovered/Resolved]
  - Vertebral column mass [Recovered/Resolved]

NARRATIVE: CASE EVENT DATE: 20180915
